FAERS Safety Report 7211769-5 (Version None)
Quarter: 2011Q1

REPORT INFORMATION
  Report Type: 
  Country: None (occurrence: None)
  Receive Date: 20110105
  Receipt Date: 20101223
  Transmission Date: 20110831
  Serious: Yes (Other)
  Sender: FDA-Public Use
  Company Number: FR-WATSON-2010-16593

PATIENT
  Age: 51 Year
  Sex: Female
  Weight: 57 kg

DRUGS (3)
  1. LIDOCAINE HYDROCHLORIDE [Suspect]
     Indication: LOCAL ANAESTHESIA
     Dosage: 20 MG/ML, SINGLE
  2. ROPIVACAINE [Suspect]
     Indication: LOCAL ANAESTHESIA
     Dosage: 7.5 MG/ML, SINGLE
  3. CARBAMAZEPINE [Suspect]
     Indication: TRIGEMINAL NEURALGIA
     Dosage: 200 MG AM, 400 MG PM

REACTIONS (9)
  - AGITATION [None]
  - DYSKINESIA [None]
  - TOXICITY TO VARIOUS AGENTS [None]
  - COMA SCALE ABNORMAL [None]
  - HEART RATE INCREASED [None]
  - RESPIRATORY RATE INCREASED [None]
  - DRUG INTERACTION [None]
  - CONFUSIONAL STATE [None]
  - BLOOD PRESSURE INCREASED [None]
